FAERS Safety Report 8618726-2 (Version None)
Quarter: 2012Q3

REPORT INFORMATION
  Report Type: 
  Country: None (occurrence: None)
  Receive Date: 20120815
  Receipt Date: 20120815
  Transmission Date: 20120928
  Serious: Yes (Hospitalization)
  Sender: FDA-Public Use
  Company Number: None

PATIENT
  Sex: Female
  Weight: 57.7 kg

DRUGS (1)
  1. REMICADE [Suspect]
     Indication: RHEUMATOID ARTHRITIS
     Dosage: 200MG Q8WKS IV
     Route: 042
     Dates: start: 20120301, end: 20120615

REACTIONS (6)
  - PAIN IN EXTREMITY [None]
  - BRONCHITIS [None]
  - SEPSIS [None]
  - DYSSTASIA [None]
  - GAIT DISTURBANCE [None]
  - PNEUMONIA [None]
